FAERS Safety Report 19211452 (Version 1)
Quarter: 2021Q2

REPORT INFORMATION
  Report Type: Spontaneous
  Country: US (occurrence: US)
  Receive Date: 20210504
  Receipt Date: 20210504
  Transmission Date: 20210717
  Serious: Yes (Death)
  Sender: FDA-Public Use
  Company Number: None

PATIENT
  Age: 68 Year
  Sex: Male

DRUGS (17)
  1. FLUCONAZOLE 200MG [Concomitant]
     Active Substance: FLUCONAZOLE
  2. PREDNISONE 10MG [Concomitant]
     Active Substance: PREDNISONE
  3. ACETAMINOPHEN. [Concomitant]
     Active Substance: ACETAMINOPHEN
  4. VALGANCICLOVIR 450MG [Concomitant]
     Active Substance: VALACYCLOVIR HYDROCHLORIDE
  5. AMLODIPINE [Concomitant]
     Active Substance: AMLODIPINE BESYLATE
  6. MAG?OXIDE [Concomitant]
     Active Substance: MAGNESIUM OXIDE
  7. OMEPRAZOLE 20MG [Concomitant]
     Active Substance: OMEPRAZOLE
  8. JAKAFI [Concomitant]
     Active Substance: RUXOLITINIB
  9. CRESEMBA [Concomitant]
     Active Substance: ISAVUCONAZONIUM SULFATE
  10. TACROLIMUS. [Suspect]
     Active Substance: TACROLIMUS
     Indication: STEM CELL TRANSPLANT
     Route: 048
     Dates: start: 20200113, end: 20210430
  11. ATORVASTATIN 10MG [Concomitant]
     Active Substance: ATORVASTATIN
  12. LANTUS [Concomitant]
     Active Substance: INSULIN GLARGINE
  13. HUMALOG [Concomitant]
     Active Substance: INSULIN LISPRO
  14. PROCHLOPERAZINE 10MG [Concomitant]
  15. CYCLOBENZAPRINE 5MG [Concomitant]
     Active Substance: CYCLOBENZAPRINE
  16. PREGABALIN 150MG [Concomitant]
     Active Substance: PREGABALIN
  17. URSODIOL 300MG [Concomitant]

REACTIONS (1)
  - Death [None]
